FAERS Safety Report 23209085 (Version 1)
Quarter: 2023Q4

REPORT INFORMATION
  Report Type: Spontaneous
  Country: US (occurrence: US)
  Receive Date: 20231121
  Receipt Date: 20231121
  Transmission Date: 20240110
  Serious: Yes (Hospitalization)
  Sender: FDA-Public Use
  Company Number: US-STERISCIENCE B.V.-2023-ST-002192

PATIENT
  Age: 56 Year
  Sex: Male

DRUGS (9)
  1. VANCOMYCIN [Suspect]
     Active Substance: VANCOMYCIN
     Indication: Clostridium difficile colitis
     Dosage: UNK
     Route: 065
     Dates: start: 2020
  2. PEMBROLIZUMAB [Suspect]
     Active Substance: PEMBROLIZUMAB
     Indication: Lung adenocarcinoma
     Dosage: COMPLETED 4 CYCLES OF COMBINATION THERAPY WITH PEMETREXED AND CARBOPLATIN
     Route: 065
     Dates: start: 202006, end: 202008
  3. PEMBROLIZUMAB [Suspect]
     Active Substance: PEMBROLIZUMAB
     Dosage: 5TH MAINTENANCE DOSE WITH PEMETREXED
     Route: 065
     Dates: start: 202009
  4. PEMETREXED [Suspect]
     Active Substance: PEMETREXED
     Indication: Lung adenocarcinoma
     Dosage: COMPLETED 4 CYCLES OF COMBINATION THERAPY WITH PEMBROLIZUMAB AND CARBOPLATIN
     Route: 065
     Dates: start: 202006, end: 202008
  5. PEMETREXED [Suspect]
     Active Substance: PEMETREXED
     Dosage: 5TH MAINTENANCE DOSE WITH PEMBROLIZUMAB
     Route: 065
     Dates: start: 202009
  6. PEMETREXED [Suspect]
     Active Substance: PEMETREXED
     Dosage: ADDITIONAL DOSE WITH CARBOPLATIN
     Route: 065
     Dates: start: 202010
  7. AMLODIPINE [Suspect]
     Active Substance: AMLODIPINE BESYLATE
     Indication: Hypertension
     Dosage: UNK
     Route: 065
  8. CARBOPLATIN [Concomitant]
     Active Substance: CARBOPLATIN
     Indication: Lung adenocarcinoma
     Dosage: COMPLETED 4 CYCLES OF COMBINATION THERAPY WITH PEMBROLIZUMAB AND PEMETREXED
     Route: 065
     Dates: start: 202006, end: 202008
  9. CARBOPLATIN [Concomitant]
     Active Substance: CARBOPLATIN
     Dosage: ADDITIONAL DOSE WITH PEMETREXED
     Route: 065
     Dates: start: 202010

REACTIONS (1)
  - Thrombotic thrombocytopenic purpura [Recovered/Resolved]

NARRATIVE: CASE EVENT DATE: 20201101
